FAERS Safety Report 20982075 (Version 1)
Quarter: 2022Q2

REPORT INFORMATION
  Report Type: Spontaneous
  Country: US (occurrence: US)
  Receive Date: 20220620
  Receipt Date: 20220620
  Transmission Date: 20220721
  Serious: Yes (Other)
  Sender: FDA-Public Use
  Company Number: US-SA-SAC20220617001805

PATIENT
  Age: 22 Year
  Sex: Male

DRUGS (14)
  1. DUPIXENT [Suspect]
     Active Substance: DUPILUMAB
     Indication: Dermatitis atopic
     Dosage: 1 SYRINGE UNDER THE SKIN ONCE EVERY 14 DAYS
     Route: 058
     Dates: start: 20201026, end: 20220615
  2. AMLODIPINE [Concomitant]
     Active Substance: AMLODIPINE BESYLATE
  3. ATOMOXETINE [Concomitant]
     Active Substance: ATOMOXETINE
  4. BETAMETHASONE [Concomitant]
     Active Substance: BETAMETHASONE
  5. CALCITRIOL [Concomitant]
     Active Substance: CALCITRIOL
  6. CLONIDINE [Concomitant]
     Active Substance: CLONIDINE
  7. MYCOPHENOLIC ACID [Concomitant]
     Active Substance: MYCOPHENOLIC ACID
  8. PREDNISONE [Concomitant]
     Active Substance: PREDNISONE
     Indication: Dermatitis atopic
  9. RANITIDINE [Concomitant]
     Active Substance: RANITIDINE
  10. PROGRAF [Concomitant]
     Active Substance: TACROLIMUS
  11. STRATTERA [Concomitant]
     Active Substance: ATOMOXETINE HYDROCHLORIDE
  12. URSODIOL [Concomitant]
     Active Substance: URSODIOL
  13. VITAMIN D3 [Concomitant]
     Active Substance: CHOLECALCIFEROL
  14. LABETALOL [Concomitant]
     Active Substance: LABETALOL\LABETALOL HYDROCHLORIDE

REACTIONS (2)
  - Liver transplant [Unknown]
  - Organ transplant [Unknown]

NARRATIVE: CASE EVENT DATE: 20220318
